FAERS Safety Report 9398423 (Version 1)
Quarter: 2013Q3

REPORT INFORMATION
  Report Type: Spontaneous
  Country: US (occurrence: US)
  Receive Date: 20130712
  Receipt Date: 20130712
  Transmission Date: 20140515
  Serious: Yes (Hospitalization, Other)
  Sender: FDA-Public Use
  Company Number: US-JNJFOC-20130702374

PATIENT
  Sex: Male

DRUGS (5)
  1. TOPAMAX [Suspect]
     Indication: CONVULSION
     Route: 048
  2. TOPAMAX [Suspect]
     Indication: PARTIAL SEIZURES
     Route: 048
  3. TOPAMAX [Suspect]
     Indication: PARTIAL SEIZURES
     Route: 048
  4. DEPAKOTE [Suspect]
     Indication: CONVULSION
     Route: 065
  5. DEPAKOTE [Suspect]
     Indication: CONVULSION
     Route: 065

REACTIONS (7)
  - Mental impairment [Unknown]
  - Anxiety [Unknown]
  - Panic attack [Unknown]
  - Hallucination, visual [Unknown]
  - Fear [Unknown]
  - Weight increased [Unknown]
  - Tinea cruris [Not Recovered/Not Resolved]
